FAERS Safety Report 20029098 (Version 1)
Quarter: 2021Q4

REPORT INFORMATION
  Report Type: Spontaneous
  Country: FR (occurrence: FR)
  Receive Date: 20211103
  Receipt Date: 20211103
  Transmission Date: 20220303
  Serious: Yes (Other)
  Sender: FDA-Public Use
  Company Number: FR-SA-SAC20211103000024

PATIENT
  Sex: Female

DRUGS (1)
  1. DUPIXENT [Suspect]
     Active Substance: DUPILUMAB
     Indication: Dermatitis atopic
     Dosage: 300 MG

REACTIONS (6)
  - Metastases to bone [Unknown]
  - Breast neoplasm [Unknown]
  - Asthma [Unknown]
  - Eosinophilia [Unknown]
  - Wheezing [Unknown]
  - Bronchospasm [Unknown]
